FAERS Safety Report 9987769 (Version 1)
Quarter: 2014Q1

REPORT INFORMATION
  Report Type: Spontaneous
  Country: US (occurrence: US)
  Receive Date: 20140307
  Receipt Date: 20140307
  Transmission Date: 20141002
  Serious: Yes (Other)
  Sender: FDA-Public Use
  Company Number: US-AMGEN-USASP2014013151

PATIENT
  Age: 46 Year
  Sex: Female

DRUGS (1)
  1. ENBREL [Suspect]
     Indication: RHEUMATOID ARTHRITIS
     Dosage: 50 MG, QWK
     Route: 065
     Dates: start: 2002, end: 201307

REACTIONS (4)
  - Cellulitis [Recovered/Resolved]
  - Stasis dermatitis [Recovered/Resolved]
  - Post thrombotic syndrome [Recovered/Resolved]
  - Nasopharyngitis [Unknown]
